FAERS Safety Report 24394249 (Version 2)
Quarter: 2024Q4

REPORT INFORMATION
  Report Type: Report from Study
  Country: CA (occurrence: CA)
  Receive Date: 20241004
  Receipt Date: 20241016
  Transmission Date: 20250115
  Serious: Yes (Other)
  Sender: ABBVIE
  Company Number: CA-ABBVIE-5947917

PATIENT
  Sex: Female

DRUGS (2)
  1. SKYRIZI [Suspect]
     Active Substance: RISANKIZUMAB-RZAA
     Indication: Crohn^s disease
     Route: 058
  2. SKYRIZI [Suspect]
     Active Substance: RISANKIZUMAB-RZAA
     Route: 058
     Dates: start: 20240627

REACTIONS (6)
  - Bartholinitis [Unknown]
  - Rash papular [Unknown]
  - Vaginal infection [Unknown]
  - Myalgia [Unknown]
  - Night sweats [Unknown]
  - Discouragement [Unknown]

NARRATIVE: CASE EVENT DATE: 20240101
